FAERS Safety Report 26101638 (Version 1)
Quarter: 2025Q4

REPORT INFORMATION
  Report Type: Spontaneous
  Country: JP (occurrence: JP)
  Receive Date: 20251128
  Receipt Date: 20251128
  Transmission Date: 20260118
  Serious: Yes (Life-Threatening, Other)
  Sender: NOVARTIS
  Company Number: JP-002147023-NVSJ2025JP011509

PATIENT
  Age: 56 Year
  Sex: Male

DRUGS (4)
  1. DABRAFENIB [Suspect]
     Active Substance: DABRAFENIB
     Indication: BRAF gene mutation
     Dosage: UNK
     Route: 065
  2. DABRAFENIB [Suspect]
     Active Substance: DABRAFENIB
     Indication: Lung squamous cell carcinoma stage IV
     Dosage: DOSE REDUCED
     Route: 065
  3. TRAMETINIB [Suspect]
     Active Substance: TRAMETINIB
     Indication: BRAF gene mutation
     Dosage: UNK
     Route: 065
  4. TRAMETINIB [Suspect]
     Active Substance: TRAMETINIB
     Indication: Lung squamous cell carcinoma stage IV
     Dosage: DOSE REDUCED
     Route: 065

REACTIONS (5)
  - Platelet count decreased [Unknown]
  - Pyrexia [Recovering/Resolving]
  - Lung squamous cell carcinoma stage IV [Unknown]
  - Malignant neoplasm progression [Unknown]
  - Drug ineffective [Unknown]
